FAERS Safety Report 7676395-2 (Version None)
Quarter: 2011Q3

REPORT INFORMATION
  Report Type: 
  Country: None (occurrence: None)
  Receive Date: 20110805
  Receipt Date: 20110725
  Transmission Date: 20111222
  Serious: Yes (Other)
  Sender: FDA-Public Use
  Company Number: 1000022586

PATIENT
  Age: 39 Year
  Sex: Male

DRUGS (7)
  1. DIAZEPAM [Suspect]
     Dosage: REDUCED DOSE
     Dates: start: 20110101
  2. LANSOPRAZOLE [Concomitant]
     Dates: start: 20020101
  3. CITALOPRAM HYDROBROMIDE [Suspect]
     Dosage: ORAL
     Route: 048
     Dates: start: 20020101, end: 20110101
  4. CITALOPRAM HYDROBROMIDE [Suspect]
     Dosage: REDUCED DOSE, ORAL
     Route: 048
     Dates: start: 20110101
  5. ZOPICLONE (ZOPICLONE) [Suspect]
     Dosage: REDUCED DOSE
     Dates: start: 20110101
  6. DIAZEPAM [Suspect]
     Dates: start: 20020101, end: 20110101
  7. ZOPICLONE (ZOPICLONE) [Suspect]
     Dates: start: 20020101, end: 20110101

REACTIONS (5)
  - BALANCE DISORDER [None]
  - FALL [None]
  - CONFUSIONAL STATE [None]
  - THERMAL BURN [None]
  - LOSS OF CONSCIOUSNESS [None]
